FAERS Safety Report 13469212 (Version 2)
Quarter: 2017Q2

REPORT INFORMATION
  Report Type: Spontaneous
  Country: FR (occurrence: FR)
  Receive Date: 20170421
  Receipt Date: 20170628
  Transmission Date: 20170830
  Serious: Yes (Other)
  Sender: FDA-Public Use
  Company Number: FR-TEVA-761709ACC

PATIENT
  Age: 82 Year
  Sex: Female

DRUGS (6)
  1. LEVACT [Suspect]
     Active Substance: BENDAMUSTINE HYDROCHLORIDE
     Indication: B-CELL LYMPHOMA
     Dosage: (1ST CYCLE) (DAY 1 AND DAY 2)
     Route: 042
     Dates: start: 20161006
  2. MABTHERA [Suspect]
     Active Substance: RITUXIMAB
     Dosage: (2ND CYCLE)
     Route: 042
     Dates: start: 20161103
  3. MABTHERA [Suspect]
     Active Substance: RITUXIMAB
     Dosage: (3RD CYCLE)
     Route: 042
     Dates: start: 20161201
  4. LEVACT [Suspect]
     Active Substance: BENDAMUSTINE HYDROCHLORIDE
     Dosage: (2ND CYCLE)
     Route: 042
     Dates: start: 20161103
  5. LEVACT [Suspect]
     Active Substance: BENDAMUSTINE HYDROCHLORIDE
     Dosage: (3RD CYCLE)
     Route: 042
     Dates: start: 20161201
  6. MABTHERA [Suspect]
     Active Substance: RITUXIMAB
     Indication: B-CELL LYMPHOMA
     Dosage: (1ST CYCLE) (DAY 1)
     Route: 042
     Dates: start: 20161006

REACTIONS (2)
  - Hyperthermia [Recovered/Resolved]
  - Thrombocytopenia [Recovered/Resolved]

NARRATIVE: CASE EVENT DATE: 20161008
